FAERS Safety Report 6190744-6 (Version None)
Quarter: 2009Q2

REPORT INFORMATION
  Report Type: 
  Country: None (occurrence: None)
  Receive Date: 20090514
  Receipt Date: 20090504
  Transmission Date: 20091009
  Serious: Yes (Other)
  Sender: FDA-Public Use
  Company Number: FR-ELI_LILLY_AND_COMPANY-FR200903007293

PATIENT
  Age: 57 Year
  Sex: Female
  Weight: 92 kg

DRUGS (5)
  1. BYETTA [Suspect]
     Indication: TYPE 2 DIABETES MELLITUS
     Dosage: 10 UG, 2/D
     Route: 058
     Dates: start: 20090301
  2. TRIATEC [Concomitant]
     Dosage: 2.5 MG, DAILY (1/D)
     Route: 065
     Dates: start: 20090201
  3. CRESTOR [Concomitant]
     Dosage: 5 MG, DAILY (1/D)
     Route: 065
     Dates: start: 20090201
  4. DIAMICRON [Concomitant]
     Indication: TYPE 2 DIABETES MELLITUS
     Dosage: 30 MG, 2/D
     Route: 065
     Dates: start: 19990101
  5. GLUCOPHAGE [Concomitant]
     Indication: TYPE 2 DIABETES MELLITUS
     Dosage: 1000 D/F, 2/D
     Route: 065
     Dates: start: 19990101

REACTIONS (3)
  - DERMO-HYPODERMITIS [None]
  - HILAR LYMPHADENOPATHY [None]
  - SARCOIDOSIS [None]
